FAERS Safety Report 4970677-0 (Version None)
Quarter: 2006Q2

REPORT INFORMATION
  Report Type: 
  Country: None (occurrence: None)
  Receive Date: 20060412
  Receipt Date: 20060331
  Transmission Date: 20061013
  Serious: Yes (Other)
  Sender: FDA-Public Use
  Company Number: PHBS2006CH04774

PATIENT
  Age: 50 Year
  Sex: Female

DRUGS (1)
  1. ZOMETA [Suspect]
     Indication: BREAST CANCER FEMALE
     Dosage: 1 DF, QMO
     Route: 042
     Dates: start: 20030801, end: 20050901

REACTIONS (3)
  - DENTAL OPERATION [None]
  - OSTEONECROSIS [None]
  - TOOTH LOSS [None]
